FAERS Safety Report 10263444 (Version 1)
Quarter: 2014Q2

REPORT INFORMATION
  Report Type: Spontaneous
  Country: US (occurrence: US)
  Receive Date: 20140626
  Receipt Date: 20140626
  Transmission Date: 20141212
  Serious: No
  Sender: FDA-Public Use
  Company Number: US-GILEAD-2014-0106594

PATIENT
  Age: 70 Year
  Sex: Female

DRUGS (5)
  1. LETAIRIS [Suspect]
     Indication: PULMONARY HYPERTENSION
     Dosage: 10 MG, QD
     Route: 065
     Dates: start: 20120614
  2. FUROSEMIDE [Concomitant]
  3. AMLODIPINE [Concomitant]
  4. CITALOPRAM [Concomitant]
  5. LOSARTAN [Concomitant]

REACTIONS (1)
  - Nasal congestion [Not Recovered/Not Resolved]
